FAERS Safety Report 5701942-7 (Version None)
Quarter: 2008Q2

REPORT INFORMATION
  Report Type: 
  Country: None (occurrence: None)
  Receive Date: 20080411
  Receipt Date: 20080331
  Transmission Date: 20081010
  Serious: Yes (Hospitalization, Disabling, Other)
  Sender: FDA-Public Use
  Company Number: PHHO2004CN07210

PATIENT
  Age: 72 Year
  Sex: Female
  Weight: 63 kg

DRUGS (14)
  1. CALCIUM [Concomitant]
     Indication: OSTEOPOROSIS POSTMENOPAUSAL
  2. VITAMIN D [Concomitant]
     Indication: OSTEOPOROSIS POSTMENOPAUSAL
  3. ZOLEDRONIC ACID [Suspect]
     Indication: OSTEOPOROSIS POSTMENOPAUSAL
     Dosage: DOUBLE BLIND
     Route: 042
     Dates: start: 20021118
  4. ZOLEDRONIC ACID [Suspect]
     Dosage: 5MG, ONCE A YEAR
  5. INSULIN [Concomitant]
  6. PARACETAMOL [Concomitant]
  7. AMINOPHENAZONE [Concomitant]
  8. BARBITAL [Concomitant]
  9. ACETYLSALICYLIC ACID SRT [Concomitant]
  10. IBUPROFEN [Concomitant]
  11. FOSINOPRIL SODIUM [Concomitant]
  12. INDOMETHACIN [Concomitant]
  13. BELLADONNA ALKALOIDS [Concomitant]
  14. HEPARIN [Concomitant]

REACTIONS (19)
  - ABSCESS MANAGEMENT [None]
  - DENTAL TREATMENT [None]
  - DIABETES MELLITUS INADEQUATE CONTROL [None]
  - IMPAIRED HEALING [None]
  - MALAISE [None]
  - MOUTH HAEMORRHAGE [None]
  - MULTI-ORGAN DISORDER [None]
  - NEUROPATHY PERIPHERAL [None]
  - OEDEMA MOUTH [None]
  - OSTEOMYELITIS [None]
  - OSTEONECROSIS [None]
  - PERIODONTAL INFECTION [None]
  - PERIODONTITIS [None]
  - PYREXIA [None]
  - RETINOPATHY [None]
  - TOOTH ABSCESS [None]
  - TOOTH DISORDER [None]
  - TOOTH EXTRACTION [None]
  - TOOTHACHE [None]
